FAERS Safety Report 10098441 (Version 1)
Quarter: 2014Q2

REPORT INFORMATION
  Report Type: Spontaneous
  Country: US (occurrence: None)
  Receive Date: 20140422
  Receipt Date: 20140422
  Transmission Date: 20141212
  Serious: Yes (Other)
  Sender: FDA-Public Use
  Company Number: None

PATIENT
  Age: 44 Year
  Sex: Female
  Weight: 72.12 kg

DRUGS (13)
  1. ISONIAZID [Suspect]
     Indication: ANTIBIOTIC PROPHYLAXIS
     Route: 048
     Dates: start: 20140213, end: 20140218
  2. VIATMIN B6 [Concomitant]
  3. GLYBRURIDE [Concomitant]
  4. LANTUS [Concomitant]
  5. NOVOLOG [Concomitant]
  6. LISINOPRIL [Concomitant]
  7. CLONIDINE [Concomitant]
  8. GABAPENTIN [Concomitant]
  9. XANAX [Concomitant]
  10. BACLOFEN [Concomitant]
  11. PROZAC [Concomitant]
  12. NORCO [Concomitant]
  13. POTASSIUM [Concomitant]

REACTIONS (2)
  - Swelling face [None]
  - Lip swelling [None]
